FAERS Safety Report 8769159 (Version 1)
Quarter: 2012Q4

REPORT INFORMATION
  Report Type: Report from Study
  Country: CO (occurrence: CO)
  Receive Date: 20120904
  Receipt Date: 20120904
  Transmission Date: 20130627
  Serious: Yes (Death, Other)
  Sender: FDA-Public Use
  Company Number: CO-PFIZER INC-2012216420

PATIENT
  Sex: Female

DRUGS (1)
  1. LIPITOR [Suspect]
     Dosage: 10 mg, 1x/day
     Route: 048
     Dates: start: 20080101

REACTIONS (2)
  - Infarction [Fatal]
  - Neoplasm malignant [Unknown]
